FAERS Safety Report 15247842 (Version 1)
Quarter: 2018Q3

REPORT INFORMATION
  Report Type: Spontaneous
  Country: FR (occurrence: FR)
  Receive Date: 20180807
  Receipt Date: 20180807
  Transmission Date: 20181010
  Serious: Yes (Death, Life-Threatening, Hospitalization)
  Sender: FDA-Public Use
  Company Number: FR-ACCORD-070430

PATIENT
  Age: 82 Year
  Sex: Male
  Weight: 61 kg

DRUGS (1)
  1. DOCETAXEL ACCORD [Suspect]
     Active Substance: DOCETAXEL
     Indication: PROSTATE CANCER METASTATIC
     Route: 042
     Dates: start: 20171204, end: 20171204

REACTIONS (7)
  - Aspiration [Fatal]
  - Hypotension [Unknown]
  - Diarrhoea [Not Recovered/Not Resolved]
  - Infection [Fatal]
  - Dehydration [Unknown]
  - Dyspnoea [Fatal]
  - Vomiting [Recovered/Resolved]

NARRATIVE: CASE EVENT DATE: 20171207
